FAERS Safety Report 23991529 (Version 1)
Quarter: 2024Q2

REPORT INFORMATION
  Report Type: Spontaneous
  Country: DE (occurrence: DE)
  Receive Date: 20240619
  Receipt Date: 20240619
  Transmission Date: 20240716
  Serious: Yes (Other)
  Sender: FDA-Public Use
  Company Number: DE-002147023-NVSC2024DE127938

PATIENT
  Sex: Female

DRUGS (3)
  1. CARBAMAZEPINE [Suspect]
     Active Substance: CARBAMAZEPINE
     Indication: Facial pain
     Dosage: 300 MG, BID (1 - 0 - 1), SINCE 2017/2018
     Route: 065
  2. RAMIPRIL [Concomitant]
     Active Substance: RAMIPRIL
     Indication: Product used for unknown indication
     Dosage: UNK
     Route: 065
  3. XARELTO [Concomitant]
     Active Substance: RIVAROXABAN
     Indication: Product used for unknown indication
     Dosage: UNK
     Route: 065

REACTIONS (8)
  - Thrombosis [Unknown]
  - Pulmonary embolism [Unknown]
  - Hypertension [Unknown]
  - Sinusitis [Recovered/Resolved]
  - Sinusitis [Unknown]
  - Cystitis noninfective [Recovered/Resolved]
  - Cystitis noninfective [Unknown]
  - Drug level decreased [Unknown]

NARRATIVE: CASE EVENT DATE: 20231101
